FAERS Safety Report 20086549 (Version 1)
Quarter: 2021Q4

REPORT INFORMATION
  Report Type: Spontaneous
  Country: US (occurrence: None)
  Receive Date: 20211118
  Receipt Date: 20211118
  Transmission Date: 20220303
  Serious: No
  Sender: FDA-Public Use
  Company Number: None

PATIENT
  Sex: Female

DRUGS (1)
  1. MYCOPHENOLATE MOFETIL [Suspect]
     Active Substance: MYCOPHENOLATE MOFETIL
     Indication: Nephrotic syndrome
     Dosage: FREQUENCY : TWICE A DAY;?
     Route: 048
     Dates: start: 20210405

REACTIONS (4)
  - Nausea [None]
  - Vomiting [None]
  - Diarrhoea [None]
  - Product substitution issue [None]

NARRATIVE: CASE EVENT DATE: 20210901
